FAERS Safety Report 6097539-2 (Version None)
Quarter: 2009Q1

REPORT INFORMATION
  Report Type: 
  Country: None (occurrence: None)
  Receive Date: 20090227
  Receipt Date: 20081124
  Transmission Date: 20090719
  Serious: No
  Sender: FDA-Public Use
  Company Number: A0750523A

PATIENT
  Sex: Male

DRUGS (2)
  1. IMITREX [Suspect]
     Indication: MIGRAINE
     Dosage: 6ML SINGLE DOSE
     Route: 058
  2. GSK AUTOINJECTOR [Suspect]
     Indication: MIGRAINE
     Route: 058

REACTIONS (3)
  - DRUG INEFFECTIVE [None]
  - OVERDOSE [None]
  - PRODUCT QUALITY ISSUE [None]
